FAERS Safety Report 5870485-2 (Version None)
Quarter: 2008Q3

REPORT INFORMATION
  Report Type: 
  Country: None (occurrence: None)
  Receive Date: 20080904
  Receipt Date: 20080710
  Transmission Date: 20090109
  Serious: Yes (Other)
  Sender: FDA-Public Use
  Company Number: US-BRISTOL-MYERS SQUIBB COMPANY-14256721

PATIENT
  Age: 71 Year
  Sex: Male
  Weight: 91 kg

DRUGS (11)
  1. DEFINITY [Suspect]
     Indication: CARDIAC STRESS TEST
     Dates: start: 20080710
  2. APIDRA [Concomitant]
  3. FOLIC ACID [Concomitant]
  4. ISOSORBIDE [Concomitant]
  5. LIPITOR [Concomitant]
  6. MEGESTROL ACETATE [Concomitant]
  7. METOPROLOL TARTRATE [Concomitant]
  8. NORVASC [Concomitant]
  9. PLAVIX [Concomitant]
  10. TERAZOSIN HCL [Concomitant]
  11. ZETIA [Concomitant]

REACTIONS (2)
  - BACK PAIN [None]
  - SUPRAVENTRICULAR TACHYCARDIA [None]
